FAERS Safety Report 24308891 (Version 1)
Quarter: 2024Q3

REPORT INFORMATION
  Report Type: Spontaneous
  Country: CA (occurrence: CA)
  Receive Date: 20240911
  Receipt Date: 20240911
  Transmission Date: 20241016
  Serious: Yes (Other)
  Sender: TEVA
  Company Number: CA-TEVA-VS-3239594

PATIENT
  Age: 14 Year
  Sex: Male
  Weight: 19 kg

DRUGS (1)
  1. TADALAFIL [Suspect]
     Active Substance: TADALAFIL
     Indication: Pulmonary hypertension
     Route: 065

REACTIONS (1)
  - Arterial occlusive disease [Unknown]
